FAERS Safety Report 16258093 (Version 8)
Quarter: 2020Q1

REPORT INFORMATION
  Report Type: Report from Study
  Country: US (occurrence: US)
  Receive Date: 20190430
  Receipt Date: 20200312
  Transmission Date: 20200409
  Serious: Yes (Hospitalization, Other)
  Sender: FDA-Public Use
  Company Number: US-PFIZER INC-2017154684

PATIENT
  Age: 58 Year
  Sex: Female
  Weight: 67.59 kg

DRUGS (16)
  1. LETROZOLE. [Concomitant]
     Active Substance: LETROZOLE
     Dosage: UNK
     Dates: start: 201705
  2. ASTRAGALUS COMPLEX [Concomitant]
     Indication: BONE MARROW FAILURE
     Dosage: 1000 MG, DAILY
     Dates: start: 201703
  3. TURMERIC [Concomitant]
     Active Substance: HERBALS\TURMERIC
     Dosage: 2000 MG, ONCE DAILY
     Dates: start: 201705
  4. LETROZOLE. [Concomitant]
     Active Substance: LETROZOLE
     Indication: BREAST CANCER METASTATIC
     Dosage: 2.5 MG, ONCE DAILY
     Route: 048
     Dates: start: 201603
  5. MAITAKE GOLD 1200 [Concomitant]
     Dosage: UNK
     Dates: start: 201705
  6. IBRANCE [Suspect]
     Active Substance: PALBOCICLIB
     Dosage: 75 MG, CYCLIC (ONCE DAILY FOR 21 DAYS AND THEN OFF FOR 7 DAYS)
     Route: 048
     Dates: start: 20170525, end: 20170608
  7. IBRANCE [Suspect]
     Active Substance: PALBOCICLIB
     Dosage: 75 MG, CYCLIC (ONCE DAILY FOR 21 DAYS AND THEN OFF FOR 7 DAYS)
     Route: 048
     Dates: start: 20170719
  8. MAITAKE GOLD 1200 [Concomitant]
     Dosage: 20 GTT, DAILY
     Dates: start: 201703
  9. ASTRAGALUS COMPLEX [Concomitant]
     Dosage: 500 MG, SIX TIMES DAILY (3000MG, DAILY)
     Route: 048
     Dates: start: 201705
  10. LETROZOLE. [Concomitant]
     Active Substance: LETROZOLE
     Dosage: UNK
     Dates: start: 201703
  11. TURMERIC [Concomitant]
     Active Substance: HERBALS\TURMERIC
     Dosage: UNK
     Dates: start: 2017
  12. IBRANCE [Suspect]
     Active Substance: PALBOCICLIB
     Indication: BREAST CANCER METASTATIC
     Dosage: 75 MG, CYCLIC (ONCE DAILY FOR 21 DAYS AND THEN OFF FOR 7 DAYS)
     Route: 048
     Dates: start: 20160323
  13. IBRANCE [Suspect]
     Active Substance: PALBOCICLIB
     Dosage: 75 MG, CYCLIC (ONCE DAILY FOR 21 DAYS AND THEN OFF FOR 7 DAYS)
     Route: 048
     Dates: start: 20170323, end: 20170412
  14. MAITAKE GOLD 1200 [Concomitant]
     Indication: BONE MARROW FAILURE
     Dosage: 20 GTT, TWICE DAILY
     Route: 048
     Dates: start: 20160323
  15. TURMERIC [Concomitant]
     Active Substance: HERBALS\TURMERIC
     Indication: BONE MARROW FAILURE
     Dosage: 2000 MG, DAILY
     Route: 048
     Dates: start: 201603
  16. LETROZOLE. [Concomitant]
     Active Substance: LETROZOLE
     Dosage: UNK
     Dates: start: 201704

REACTIONS (12)
  - White blood cell count decreased [Not Recovered/Not Resolved]
  - Femur fracture [Recovering/Resolving]
  - Weight increased [Recovered/Resolved]
  - Stomatitis [Recovered/Resolved]
  - Pain in extremity [Not Recovered/Not Resolved]
  - Renal function test abnormal [Recovered/Resolved]
  - Haemoglobin decreased [Recovered/Resolved]
  - Kidney infection [Recovered/Resolved]
  - Vertigo [Not Recovered/Not Resolved]
  - Abdominal discomfort [Unknown]
  - Pyrexia [Unknown]
  - Arthralgia [Unknown]

NARRATIVE: CASE EVENT DATE: 2016
